FAERS Safety Report 23886692 (Version 1)
Quarter: 2024Q2

REPORT INFORMATION
  Report Type: Spontaneous
  Country: TR (occurrence: TR)
  Receive Date: 20240522
  Receipt Date: 20240522
  Transmission Date: 20240716
  Serious: Yes (Death)
  Sender: FDA-Public Use
  Company Number: TR-STRIDES ARCOLAB LIMITED-2024SP005826

PATIENT
  Age: 75 Year
  Sex: Female

DRUGS (3)
  1. PREDNISOLONE [Suspect]
     Active Substance: PREDNISOLONE
     Indication: Pemphigus
     Dosage: 15 MILLIGRAM
     Route: 065
  2. AZATHIOPRINE [Suspect]
     Active Substance: AZATHIOPRINE
     Indication: Pemphigus
     Dosage: 100 MILLIGRAM
     Route: 065
  3. SARS-CoV-2 vaccine [Concomitant]
     Indication: COVID-19 immunisation
     Dosage: UNK, (RECEIVED 2 DOSES)
     Route: 065

REACTIONS (1)
  - COVID-19 [Fatal]
